FAERS Safety Report 20147059 (Version 3)
Quarter: 2024Q3

REPORT INFORMATION
  Report Type: Spontaneous
  Country: US (occurrence: US)
  Receive Date: 20211203
  Receipt Date: 20240712
  Transmission Date: 20241017
  Serious: Yes (Hospitalization)
  Sender: SANOFI AVENTIS
  Company Number: US-SA-SAC20211125001328

PATIENT
  Age: 58 Year
  Sex: Male
  Weight: 97.52 kg

DRUGS (6)
  1. DUPIXENT [Suspect]
     Active Substance: DUPILUMAB
     Indication: Dermatitis atopic
     Dosage: 600 MG, 1X
     Route: 058
     Dates: start: 20211111, end: 20211111
  2. DUPIXENT [Suspect]
     Active Substance: DUPILUMAB
     Dosage: 300 MG, QOW
     Route: 058
     Dates: start: 20211126
  3. NAPROXEN [Concomitant]
     Active Substance: NAPROXEN
     Dosage: UNK
  4. FLUTICASONE PROPIONATE [Concomitant]
     Active Substance: FLUTICASONE PROPIONATE
     Dosage: UNK
  5. ALBUTEROL SULFATE [Concomitant]
     Active Substance: ALBUTEROL SULFATE
     Dosage: UNK
  6. BREO ELLIPTA [Concomitant]
     Active Substance: FLUTICASONE FUROATE\VILANTEROL TRIFENATATE
     Dosage: UNK, 100-25MCG BLST W/DEV

REACTIONS (7)
  - Road traffic accident [Unknown]
  - Skin ulcer [Recovering/Resolving]
  - Dry skin [Unknown]
  - Weight decreased [Unknown]
  - Decreased appetite [Unknown]
  - Skin induration [Unknown]
  - Pruritus [Unknown]

NARRATIVE: CASE EVENT DATE: 20211101
